FAERS Safety Report 5868517-0 (Version None)
Quarter: 2008Q3

REPORT INFORMATION
  Report Type: 
  Country: None (occurrence: None)
  Receive Date: 20080903
  Receipt Date: 20080822
  Transmission Date: 20090109
  Serious: Yes (Other)
  Sender: FDA-Public Use
  Company Number: US-NOVOPROD-278749

PATIENT
  Age: 58 Year
  Sex: Female

DRUGS (4)
  1. NOVOLOG [Suspect]
     Indication: INSULIN-REQUIRING TYPE 2 DIABETES MELLITUS
     Dosage: 10 IU, QID (BEFORE MEALS AND AT BEDTIME)
     Route: 058
  2. NOVOLOG [Suspect]
     Dosage: SLIDING SCALE FOR HIGH BLOOD SUGARS
     Route: 058
  3. LANTUS [Concomitant]
     Indication: INSULIN-REQUIRING TYPE 2 DIABETES MELLITUS
     Dosage: UNKNOWN
     Route: 058
     Dates: start: 20040101
  4. LANTUS [Concomitant]
     Dates: start: 20040101

REACTIONS (3)
  - BLOOD GLUCOSE INCREASED [None]
  - DEVICE MALFUNCTION [None]
  - DIABETIC RETINOPATHY [None]
